FAERS Safety Report 4362934-6 (Version None)
Quarter: 2004Q2

REPORT INFORMATION
  Report Type: 
  Country: None (occurrence: None)
  Receive Date: 20040518
  Receipt Date: 20040506
  Transmission Date: 20050107
  Serious: Yes (Hospitalization)
  Sender: FDA-Public Use
  Company Number: 03P-062-0229893-00

PATIENT
  Age: 42 Year
  Sex: Female
  Weight: 63 kg

DRUGS (10)
  1. HUMIRA (ADALIMUMAB) (ADALIMUMAB) [Suspect]
     Indication: RHEUMATOID ARTHRITIS
     Dosage: 40 MG, 1 IN 2 WK, SUBCUTANEOUS
     Route: 058
     Dates: start: 20030312
  2. METHOTREXATE [Concomitant]
  3. DMARD [Concomitant]
  4. PREDNISOLONE [Concomitant]
  5. FOLIC ACID [Concomitant]
  6. OXYCODONE HCL [Concomitant]
  7. ROFECOXIB [Concomitant]
  8. ESOMEPRAZOLE [Concomitant]
  9. HYOSCINE HBR HYT [Concomitant]
  10. TRAMADOL HYDROCHLORIDE [Concomitant]

REACTIONS (4)
  - BILIARY CIRRHOSIS PRIMARY [None]
  - GASTRITIS [None]
  - STEATORRHOEA [None]
  - VERTIGO [None]
